FAERS Safety Report 7553004-4 (Version None)
Quarter: 2011Q2

REPORT INFORMATION
  Report Type: 
  Country: None (occurrence: None)
  Receive Date: 20110616
  Receipt Date: 20110607
  Transmission Date: 20111010
  Serious: Yes (Life-Threatening, Hospitalization, Other)
  Sender: FDA-Public Use
  Company Number: US-BAYER-201024336NA

PATIENT
  Age: 24 Year
  Sex: Female
  Weight: 71.655 kg

DRUGS (6)
  1. DONNATAL [Concomitant]
  2. DROSPIRENONE AND ETHINYL ESTRADIOL [Suspect]
     Indication: CONTRACEPTION
     Dosage: UNK
     Route: 048
     Dates: start: 20070401, end: 20090701
  3. CELEXA [Concomitant]
  4. YASMIN [Suspect]
     Indication: CONTRACEPTION
     Dosage: UNK
     Route: 048
     Dates: start: 20070401, end: 20090701
  5. YAZ [Suspect]
     Indication: CONTRACEPTION
     Dosage: UNK
     Route: 048
     Dates: start: 20070401, end: 20090701
  6. TYLENOL W/ CODEINE [Concomitant]

REACTIONS (4)
  - INJURY [None]
  - GALLBLADDER DISORDER [None]
  - ORGAN FAILURE [None]
  - CHOLECYSTITIS CHRONIC [None]
